FAERS Safety Report 6538184-1 (Version None)
Quarter: 2010Q1

REPORT INFORMATION
  Report Type: 
  Country: None (occurrence: None)
  Receive Date: 20100111
  Receipt Date: 20100104
  Transmission Date: 20100710
  Serious: Yes (Hospitalization)
  Sender: FDA-Public Use
  Company Number: A-CH2008-21966

PATIENT
  Age: 14 Year
  Sex: Male
  Weight: 39.5 kg

DRUGS (6)
  1. TRACLEER [Suspect]
     Indication: VENTRICULAR DYSFUNCTION
     Dosage: 25 MG, BID, ORAL, 31.25 MG, ORAL
     Route: 048
     Dates: start: 20080707, end: 20080829
  2. FUROSEMIDE [Concomitant]
  3. LISINOPRIL [Concomitant]
  4. SILDENAFIL [Concomitant]
  5. SPIRONOLACTONE [Concomitant]
  6. WARFARIN SODIUM [Concomitant]

REACTIONS (2)
  - BONE MARROW FAILURE [None]
  - OFF LABEL USE [None]
